FAERS Safety Report 9249937 (Version 3)
Quarter: 2013Q4

REPORT INFORMATION
  Report Type: Spontaneous
  Country: FI (occurrence: FI)
  Receive Date: 20130424
  Receipt Date: 20131001
  Transmission Date: 20140711
  Serious: Yes (Hospitalization, Other)
  Sender: FDA-Public Use
  Company Number: FI-009507513-1304FIN012011

PATIENT
  Age: 9 Year
  Sex: Male
  Weight: 30 kg

DRUGS (8)
  1. BRIDION [Suspect]
     Indication: SURGERY
     Dosage: UNK
     Dates: start: 20130320, end: 20130320
  2. BRIDION [Suspect]
     Indication: TONSILLECTOMY
     Dosage: 4MG/KG= TOTAL 120MG, ONCE
     Dates: start: 20130328, end: 20130328
  3. ROCURONIUM BROMIDE [Concomitant]
     Indication: SURGERY
     Dosage: UNK
     Dates: start: 20130320, end: 20130320
  4. ROCURONIUM BROMIDE [Concomitant]
     Indication: TONSILLECTOMY
     Dosage: UNK
     Dates: start: 20130328, end: 20130328
  5. ROCURONIUM BROMIDE [Concomitant]
     Dosage: UNK
     Dates: start: 20130404
  6. PANACOD [Concomitant]
     Indication: PROCEDURAL PAIN
     Dosage: UNK UNK, PRN
     Dates: start: 20130320
  7. TRAMAL [Concomitant]
     Indication: PROCEDURAL PAIN
     Dosage: UNK, PRN
     Dates: start: 20130320
  8. PRONAXEN [Concomitant]
     Indication: PROCEDURAL PAIN
     Dosage: UNK, PRN
     Dates: start: 20130320

REACTIONS (14)
  - Adverse event [Unknown]
  - Epilepsy [Unknown]
  - Epilepsy [Unknown]
  - Epilepsy [Unknown]
  - Epilepsy [Recovering/Resolving]
  - Aggression [Unknown]
  - Appendicectomy [Recovered/Resolved]
  - Appendicitis [Recovered/Resolved]
  - Surgery [Recovered/Resolved]
  - Post procedural haemorrhage [Recovered/Resolved]
  - Daydreaming [Recovered/Resolved]
  - Headache [Recovered/Resolved]
  - Staring [Recovered/Resolved]
  - Surgery [Recovered/Resolved]
